FAERS Safety Report 21079591 (Version 2)
Quarter: 2022Q3

REPORT INFORMATION
  Report Type: Report from Study
  Country: MX (occurrence: MX)
  Receive Date: 20220714
  Receipt Date: 20220727
  Transmission Date: 20221027
  Serious: Yes (Hospitalization, Other)
  Sender: FDA-Public Use
  Company Number: MX-NOVARTISPH-NVSC2022MX158619

PATIENT
  Sex: Female
  Weight: 90 kg

DRUGS (10)
  1. ENTRESTO [Suspect]
     Active Substance: SACUBITRIL\VALSARTAN
     Indication: Hypertension
     Dosage: 1 DOSAGE FORM, QD (100 MG)
     Route: 048
     Dates: start: 2018
  2. ENTRESTO [Suspect]
     Active Substance: SACUBITRIL\VALSARTAN
     Dosage: 1 DOSAGE FORM, QD (50 MG)
     Route: 048
  3. ENTRESTO [Suspect]
     Active Substance: SACUBITRIL\VALSARTAN
     Dosage: 0.5 DOSAGE FORM, QD (100 MG)
     Route: 048
  4. ENTRESTO [Suspect]
     Active Substance: SACUBITRIL\VALSARTAN
     Dosage: 0.5 DOSAGE FORM, QD (50 MG) STARTED 1 YEAR AGO
     Route: 048
  5. JANUMET [Concomitant]
     Active Substance: METFORMIN HYDROCHLORIDE\SITAGLIPTIN PHOSPHATE
     Indication: Product used for unknown indication
     Dosage: 1 DOSAGE FORM, QD
     Route: 048
     Dates: start: 2022
  6. OMEPRAZOLE [Concomitant]
     Active Substance: OMEPRAZOLE
     Indication: Gastritis prophylaxis
     Dosage: 1 DOSAGE FORM, QD (STARTED 1 YEAR AGO)
     Route: 048
  7. DIOSMIN [Concomitant]
     Active Substance: DIOSMIN
     Indication: Peripheral vascular disorder
     Dosage: 1 DOSAGE FORM, QD (STARTED 3 YEARS AGO)
     Route: 048
  8. ESPAVEN [Concomitant]
     Indication: Gastritis prophylaxis
     Dosage: 3 DOSAGE FORM, QD (STARTED 3 YEARS AGO)
     Route: 048
  9. FUROSEMIDE\SPIRONOLACTONE [Concomitant]
     Active Substance: FUROSEMIDE\SPIRONOLACTONE
     Indication: Polyuria
     Dosage: 1 DOSAGE FORM, Q72H
     Route: 048
     Dates: start: 202201
  10. OXYGEN [Concomitant]
     Active Substance: OXYGEN
     Indication: Chronic obstructive pulmonary disease
     Dosage: 1 L/MIN, QHS (SEVERAL YEARS AGO)
     Route: 055

REACTIONS (7)
  - Spinal fracture [Recovered/Resolved with Sequelae]
  - Fall [Recovered/Resolved]
  - Arrhythmia [Unknown]
  - Ill-defined disorder [Not Recovered/Not Resolved]
  - Blood pressure decreased [Recovering/Resolving]
  - Wrong technique in product usage process [Unknown]
  - Off label use [Unknown]

NARRATIVE: CASE EVENT DATE: 20180101
